FAERS Safety Report 6889194-6 (Version None)
Quarter: 2010Q3

REPORT INFORMATION
  Report Type: 
  Country: None (occurrence: None)
  Receive Date: 20100730
  Receipt Date: 20080108
  Transmission Date: 20110219
  Serious: Yes (Other)
  Sender: FDA-Public Use
  Company Number: US-PFIZER INC-2008002604

PATIENT
  Sex: Male
  Weight: 94.545 kg

DRUGS (5)
  1. LIPITOR [Suspect]
     Indication: MYOCARDIAL INFARCTION
     Dates: start: 20071001
  2. CHANTIX [Concomitant]
     Dates: start: 20071001
  3. PLAVIX [Concomitant]
     Dates: start: 20071001
  4. ALL OTHER THERAPEUTIC PRODUCTS [Concomitant]
     Dates: start: 20071001
  5. ACETYLSALICYLIC ACID SRT [Concomitant]
     Dates: start: 20071001

REACTIONS (2)
  - BLOOD PRESSURE INCREASED [None]
  - WRONG TECHNIQUE IN DRUG USAGE PROCESS [None]
